FAERS Safety Report 10904262 (Version 5)
Quarter: 2015Q2

REPORT INFORMATION
  Report Type: Spontaneous
  Country: FI (occurrence: FI)
  Receive Date: 20150311
  Receipt Date: 20150427
  Transmission Date: 20150821
  Serious: Yes (Other)
  Sender: FDA-Public Use
  Company Number: FI-SA-2015SA028274

PATIENT
  Age: 33 Year
  Sex: Female

DRUGS (3)
  1. TRIPTYL [Concomitant]
     Active Substance: AMITRIPTYLINE HYDROCHLORIDE
     Dosage: 10 MG NOS
  2. AUBAGIO [Suspect]
     Active Substance: TERIFLUNOMIDE
     Indication: MULTIPLE SCLEROSIS
     Route: 065
     Dates: start: 20141204
  3. THYROXIN [Concomitant]
     Active Substance: LEVOTHYROXINE
     Indication: HYPOTHYROIDISM
     Dosage: 25 MICROG

REACTIONS (8)
  - Peripheral coldness [Not Recovered/Not Resolved]
  - Skin discolouration [Recovered/Resolved]
  - Limb discomfort [Unknown]
  - Peripheral swelling [Not Recovered/Not Resolved]
  - Raynaud^s phenomenon [Not Recovered/Not Resolved]
  - Cardiovascular insufficiency [Not Recovered/Not Resolved]
  - Paraesthesia [Not Recovered/Not Resolved]
  - Erythema [Unknown]

NARRATIVE: CASE EVENT DATE: 20150304
